FAERS Safety Report 23937557 (Version 1)
Quarter: 2024Q2

REPORT INFORMATION
  Report Type: Spontaneous
  Country: UG (occurrence: UG)
  Receive Date: 20240604
  Receipt Date: 20240604
  Transmission Date: 20240716
  Serious: Yes (Hospitalization, Other)
  Sender: FDA-Public Use
  Company Number: None

PATIENT
  Age: 70 Year
  Sex: Female

DRUGS (3)
  1. OLANZAPINE [Suspect]
     Active Substance: OLANZAPINE
     Indication: Psychotic disorder
     Dosage: AT BEDTIME.
     Route: 048
  2. DONEPEZIL HYDROCHLORIDE [Suspect]
     Active Substance: DONEPEZIL HYDROCHLORIDE
     Indication: Amnesia
     Dosage: LOW-DOSE
     Route: 048
  3. HALOPERIDOL [Concomitant]
     Active Substance: HALOPERIDOL
     Indication: Psychotic disorder
     Dosage: 5 MG, 2 TIMES PER DAY
     Route: 048

REACTIONS (2)
  - Bradycardia [Recovered/Resolved]
  - Syncope [Recovered/Resolved]
